FAERS Safety Report 7137656-9 (Version None)
Quarter: 2010Q4

REPORT INFORMATION
  Report Type: 
  Country: None (occurrence: None)
  Receive Date: 20101206
  Receipt Date: 20101126
  Transmission Date: 20110411
  Serious: Yes (Life-Threatening, Hospitalization)
  Sender: FDA-Public Use
  Company Number: FR-SANOFI-AVENTIS-2010SA071688

PATIENT
  Age: 21 Year
  Sex: Male

DRUGS (6)
  1. LASIX [Suspect]
     Indication: DIURETIC THERAPY
     Route: 048
     Dates: start: 20101004, end: 20101012
  2. AMOXICILLIN AND CLAVULANATE POTASSIUM [Suspect]
     Route: 048
     Dates: start: 20101004, end: 20101012
  3. CALCIDIA [Suspect]
     Route: 048
     Dates: start: 20100920, end: 20101004
  4. UVEDOSE [Suspect]
     Route: 048
     Dates: start: 20101006, end: 20101018
  5. ESOMEPRAZOLE [Suspect]
     Indication: GASTRIC ULCER
     Route: 048
     Dates: start: 20101004, end: 20101012
  6. PARACETAMOL [Suspect]
     Indication: PAIN
     Route: 048
     Dates: start: 20101004, end: 20101018

REACTIONS (2)
  - BONE MARROW TOXICITY [None]
  - PANCYTOPENIA [None]
